FAERS Safety Report 8570900-X (Version None)
Quarter: 2012Q3

REPORT INFORMATION
  Report Type: 
  Country: None (occurrence: None)
  Receive Date: 20120806
  Receipt Date: 20120727
  Transmission Date: 20120928
  Serious: Yes (Other)
  Sender: FDA-Public Use
  Company Number: CH-BIOGENIDEC-2012BI028818

PATIENT
  Sex: Female

DRUGS (2)
  1. ISOTRETINOIN [Concomitant]
     Indication: ACNE
  2. AVONEX [Suspect]
     Indication: RELAPSING-REMITTING MULTIPLE SCLEROSIS
     Route: 030
     Dates: start: 20111106, end: 20111205

REACTIONS (3)
  - TRANSAMINASES INCREASED [None]
  - EPILEPSY [None]
  - HEPATIC ADENOMA [None]
